FAERS Safety Report 6569229-0 (Version None)
Quarter: 2010Q1

REPORT INFORMATION
  Report Type: 
  Country: None (occurrence: None)
  Receive Date: 20100201
  Receipt Date: 20100201
  Transmission Date: 20100710
  Serious: Yes (Other)
  Sender: FDA-Public Use
  Company Number: None

PATIENT
  Age: 57 Year
  Sex: Female
  Weight: 88.4514 kg

DRUGS (2)
  1. HYDROCODONE BITARTRATE AND HOMATROPINE METHYLBROMIDE [Suspect]
     Indication: BRONCHITIS
     Dosage: 1 TEASPOONFUL EVERY 6 HOURS PO, ONCE
     Route: 048
     Dates: start: 20100128, end: 20100128
  2. HYDROCODONE BITARTRATE AND HOMATROPINE METHYLBROMIDE [Suspect]
     Indication: COUGH
     Dosage: 1 TEASPOONFUL EVERY 6 HOURS PO, ONCE
     Route: 048
     Dates: start: 20100128, end: 20100128

REACTIONS (2)
  - DIZZINESS [None]
  - NAUSEA [None]
